FAERS Safety Report 10215014 (Version 1)
Quarter: 2014Q2

REPORT INFORMATION
  Report Type: Report from Study
  Country: US (occurrence: US)
  Receive Date: 20140603
  Receipt Date: 20140603
  Transmission Date: 20141212
  Serious: Yes (Death, Hospitalization, Other)
  Sender: FDA-Public Use
  Company Number: US-TEVA-485603USA

PATIENT
  Age: 69 Year
  Sex: Female
  Weight: 47.9 kg

DRUGS (33)
  1. DAUNORUBICIN [Suspect]
     Dates: end: 20140512
  2. CYTARABINE [Suspect]
     Route: 042
     Dates: end: 20140512
  3. ACYCLOVIR [Concomitant]
     Dosage: 400 MILLIGRAM DAILY;
  4. ALBUTEROL [Concomitant]
     Dosage: 2.5MG =3M NEB Q4HOURS
     Route: 055
  5. ALLOPURINOL [Concomitant]
     Dosage: 300 MILLIGRAM DAILY;
  6. AZITHROMYCIN [Concomitant]
     Dosage: 500MG = 2 TABS
     Route: 048
  7. CHOLECALCIFEROL [Concomitant]
     Dosage: 1000 IU (INTERNATIONAL UNIT) DAILY;
  8. DOCUSATE SODIUM CAP [Concomitant]
     Dosage: 200 MILLIGRAM DAILY;
  9. ETOMIDATE [Concomitant]
     Dosage: 20MG=10ML
     Route: 042
  10. GUAIFENEALN [Concomitant]
     Indication: COUGH
     Dosage: Q4H PRN
     Route: 048
  11. GUAIFENEALN [Concomitant]
     Indication: NASAL CONGESTION
  12. LEVOTHYROXINE [Concomitant]
     Dosage: 50 MICROGRAM DAILY;
  13. LORAZEPAM [Concomitant]
     Dosage: HS
  14. LORAZEPAM [Concomitant]
     Indication: NAUSEA
     Dosage: PRN
     Route: 042
  15. LORAZEPAM [Concomitant]
     Indication: VOMITING
  16. MIDAZOLAM [Concomitant]
     Dosage: 2MG/2ML- ONE DOSE
     Route: 042
  17. NOREPINEPHRINE 0.1% [Concomitant]
     Dosage: 250 ML - 37.5 ML/HR - IV INFUSION
  18. ONDANSETRON [Concomitant]
     Dosage: 4MG/2ML-IV - EVERY 24 HR (INT) - 8 DOSE(S)
     Route: 042
  19. ONDANSETRON [Concomitant]
     Indication: NAUSEA
     Dosage: IV EVERY 8HRS PRN N/V
     Route: 042
  20. ONDANSETRON [Concomitant]
     Indication: VOMITING
  21. OXYCODONE TAB [Concomitant]
     Indication: PAIN
     Dosage: Q4H PRN PAIN
  22. PANTOPRAZOLE [Concomitant]
     Dosage: 40 MILLIGRAM DAILY;
     Route: 048
  23. PHENYLEPHRINE [Concomitant]
     Dosage: 45ML/HR
     Route: 042
  24. PIPIERACILLIN /TAZOBACTAM [Concomitant]
     Dosage: Q6H X 5 DAYS
     Route: 042
  25. POLYETHYLE GLYCOL [Concomitant]
     Dosage: 17 GRAM DAILY;
     Route: 046
  26. ROCURONIUM [Concomitant]
     Dosage: 50MG/5ML X ONE DOSE
     Route: 042
  27. SODIUM BICARBONATE POWDER [Concomitant]
     Indication: ORAL PAIN
     Dosage: 5ML GARGLE EVERY 6HR.
     Route: 048
  28. SODIUM CHLORIDE 0.9% [Concomitant]
     Dosage: 75ML/HR
     Route: 042
  29. SODIUM CHLORIDE GRANULES [Concomitant]
     Indication: ORAL PAIN
     Dosage: GARGLE EVERY 6 HOURS
     Route: 048
  30. TRAZODONE [Concomitant]
     Indication: INSOMNIA
     Dosage: NIGHTLY
     Route: 048
  31. VANCOMYCIN [Concomitant]
     Dosage: 3 VIALS 166.67 ML/HR IVPB ONCE
     Route: 042
  32. VANCOMYCIN [Concomitant]
     Dosage: 1GRAM IV Q 24 HOURS
     Route: 042
  33. VORICONAZOLE [Concomitant]
     Dosage: 400 MILLIGRAM DAILY;
     Route: 048

REACTIONS (2)
  - Septic shock [Fatal]
  - Pneumonia [Unknown]
